FAERS Safety Report 8439411-6 (Version None)
Quarter: 2012Q2

REPORT INFORMATION
  Report Type: 
  Country: None (occurrence: None)
  Receive Date: 20120615
  Receipt Date: 20120601
  Transmission Date: 20120825
  Serious: Yes (Other)
  Sender: FDA-Public Use
  Company Number: KR-PURDUE-DEU-2012-0009027

PATIENT
  Age: 61 Year
  Sex: Female

DRUGS (5)
  1. MORPHINE SULFATE [Suspect]
     Indication: PAIN
     Dosage: 0.4 ML/HR, UNK
     Route: 008
  2. FAMVIR                             /01226201/ [Concomitant]
     Dosage: 250 MG, TID
  3. ULTRACET [Concomitant]
     Dosage: UNK, DAILY
     Route: 048
  4. MORPHINE SULFATE [Suspect]
     Dosage: 0.2 MCG/HR, UNK
     Route: 008
  5. LYRICA [Concomitant]
     Dosage: 150 MG, BID

REACTIONS (1)
  - MYOCLONUS [None]
